FAERS Safety Report 8478069-7 (Version None)
Quarter: 2012Q2

REPORT INFORMATION
  Report Type: 
  Country: None (occurrence: None)
  Receive Date: 20120629
  Receipt Date: 20120625
  Transmission Date: 20120825
  Serious: Yes (Death, Other)
  Sender: FDA-Public Use
  Company Number: US-PFIZER INC-2012127267

PATIENT
  Age: 84 Year
  Sex: Male

DRUGS (1)
  1. THROMBIN NOS [Suspect]
     Indication: HAEMOSTASIS
     Dosage: 5000 IU, UNK
     Route: 003

REACTIONS (2)
  - ACTIVATED PARTIAL THROMBOPLASTIN TIME PROLONGED [None]
  - COAGULOPATHY [None]
